FAERS Safety Report 7517108-4 (Version None)
Quarter: 2011Q2

REPORT INFORMATION
  Report Type: 
  Country: None (occurrence: None)
  Receive Date: 20110601
  Receipt Date: 20110526
  Transmission Date: 20111010
  Serious: Yes (Hospitalization)
  Sender: FDA-Public Use
  Company Number: JP-ABBOTT-11P-087-0713204-00

PATIENT
  Sex: Male
  Weight: 46 kg

DRUGS (17)
  1. PREDNISOLONE [Concomitant]
     Indication: CROHN'S DISEASE
     Route: 048
     Dates: start: 20101101, end: 20110201
  2. HUMIRA [Suspect]
     Indication: CROHN'S DISEASE
     Route: 058
     Dates: start: 20101102, end: 20110228
  3. LANSOPRAZOLE [Concomitant]
     Indication: PROPHYLAXIS
  4. AZATHIOPRINE [Concomitant]
     Indication: CROHN'S DISEASE
     Route: 048
     Dates: start: 20100118, end: 20110201
  5. LANSOPRAZOLE [Concomitant]
     Indication: GASTROINTESTINAL MUCOSAL DISORDER
     Route: 048
     Dates: start: 20091122
  6. CLOSTRIDIUM BUTYRICUM [Concomitant]
     Indication: PRODUCT USED FOR UNKNOWN INDICATION
     Route: 048
  7. LANSOPRAZOLE [Concomitant]
     Indication: GASTRIC DISORDER
  8. OFLOXACIN [Concomitant]
     Indication: PRODUCT USED FOR UNKNOWN INDICATION
     Dates: start: 20110224, end: 20110310
  9. HUMIRA [Suspect]
     Dates: end: 20110315
  10. ALENDRONATE SODIUM [Concomitant]
     Indication: PRODUCT USED FOR UNKNOWN INDICATION
     Route: 048
     Dates: start: 20110201
  11. PREDNISOLONE [Concomitant]
     Route: 048
     Dates: start: 20110202
  12. AZATHIOPRINE [Concomitant]
     Dosage: ALTERNATE-DAY DOSING
     Route: 048
     Dates: start: 20110202
  13. CODEINE PHOSPHATE HYDRATE [Concomitant]
     Indication: PROPHYLAXIS AGAINST DIARRHOEA
     Route: 048
  14. SULFAMETHOXAZOLE AND TRIMETHOPRIM [Concomitant]
     Indication: PRODUCT USED FOR UNKNOWN INDICATION
     Route: 048
     Dates: start: 20110311
  15. MESALAMINE [Concomitant]
     Indication: CROHN'S DISEASE
     Route: 048
     Dates: start: 20100116
  16. CODEINE PHOSPHATE HYDRATE [Concomitant]
  17. CLARITHROMYCIN [Concomitant]
     Indication: PRODUCT USED FOR UNKNOWN INDICATION
     Route: 048
     Dates: start: 20110208

REACTIONS (2)
  - PYREXIA [None]
  - HAEMOPTYSIS [None]
